FAERS Safety Report 25287842 (Version 2)
Quarter: 2025Q4

REPORT INFORMATION
  Report Type: Spontaneous
  Country: JP (occurrence: JP)
  Receive Date: 20250509
  Receipt Date: 20251210
  Transmission Date: 20260117
  Serious: Yes (Death, Life-Threatening, Hospitalization, Other)
  Sender: PFIZER
  Company Number: JP-PFIZER INC-202500095599

PATIENT
  Age: 65 Year
  Sex: Male

DRUGS (10)
  1. METHYLPREDNISOLONE SODIUM SUCCINATE [Suspect]
     Active Substance: METHYLPREDNISOLONE SODIUM SUCCINATE
     Indication: Pneumonitis
     Dosage: 1000 MG, DAILY FOR 3 DAYS
     Route: 042
  2. PREDNISOLONE [Suspect]
     Active Substance: PREDNISOLONE
     Indication: Sarcoidosis
     Dosage: 5 MG, 1X/DAY, LONG-TERM; APPROXIMATELY 10 YEARS
  3. ENCORAFENIB [Concomitant]
     Active Substance: ENCORAFENIB
     Indication: Rectal cancer stage IV
     Dosage: 300 MG, 1X/DAY
  4. ENCORAFENIB [Concomitant]
     Active Substance: ENCORAFENIB
     Indication: Metastases to lung
  5. ENCORAFENIB [Concomitant]
     Active Substance: ENCORAFENIB
     Indication: Metastases to liver
  6. ENCORAFENIB [Concomitant]
     Active Substance: ENCORAFENIB
     Indication: Metastases to lymph nodes
  7. CETUXIMAB [Concomitant]
     Active Substance: CETUXIMAB
     Indication: Rectal cancer stage IV
     Dosage: 400 MG/M2, INITIAL DOSE
  8. CETUXIMAB [Concomitant]
     Active Substance: CETUXIMAB
     Indication: Metastases to lung
     Dosage: 250 MG/M2, WEEKLY
  9. CETUXIMAB [Concomitant]
     Active Substance: CETUXIMAB
     Indication: Metastases to liver
  10. CETUXIMAB [Concomitant]
     Active Substance: CETUXIMAB
     Indication: Metastases to lymph nodes

REACTIONS (3)
  - Duodenal ulcer [Fatal]
  - Abdominal abscess [Fatal]
  - Off label use [Unknown]
